FAERS Safety Report 16799490 (Version 1)
Quarter: 2019Q3

REPORT INFORMATION
  Report Type: Spontaneous
  Country: US (occurrence: US)
  Receive Date: 20190912
  Receipt Date: 20190912
  Transmission Date: 20191005
  Serious: Yes (Other)
  Sender: FDA-Public Use
  Company Number: US-PFIZER INC-2019391642

PATIENT

DRUGS (1)
  1. METAXALONE. [Suspect]
     Active Substance: METAXALONE
     Indication: MUSCULOSKELETAL DISCOMFORT
     Dosage: UNK

REACTIONS (3)
  - Cerebral palsy [Unknown]
  - Insomnia [Unknown]
  - Seizure [Unknown]
